FAERS Safety Report 8612497-1 (Version None)
Quarter: 2012Q3

REPORT INFORMATION
  Report Type: 
  Country: None (occurrence: None)
  Receive Date: 20120822
  Receipt Date: 20120813
  Transmission Date: 20120928
  Serious: Yes (Death)
  Sender: FDA-Public Use
  Company Number: FR-NAPPMUNDI-GBR-2012-0011040

PATIENT
  Sex: Male

DRUGS (6)
  1. OXYCODONE HCL [Suspect]
     Indication: PAIN
     Dosage: 40 MG, DAILY
     Route: 048
     Dates: start: 20120423, end: 20120428
  2. AMOXICILLIN [Suspect]
     Dosage: UNK
     Route: 042
     Dates: start: 20120425, end: 20120428
  3. NEFOPAM [Suspect]
     Dosage: UNK, Q6H
     Route: 048
     Dates: start: 20120422, end: 20120428
  4. GENTAMICIN [Suspect]
     Dosage: 240 MG, UNK
     Route: 042
     Dates: start: 20120425, end: 20120428
  5. OXYCODONE HCL [Suspect]
     Indication: PAIN
     Dosage: UNK
     Route: 048
     Dates: start: 20120423, end: 20120428
  6. PENTOXIFYLLINE [Suspect]
     Dosage: 20 MG, UNK

REACTIONS (2)
  - INTERNATIONAL NORMALISED RATIO INCREASED [None]
  - CEREBROVASCULAR ACCIDENT [None]
